FAERS Safety Report 8641133 (Version 3)
Quarter: 2013Q2

REPORT INFORMATION
  Report Type: Spontaneous
  Country: US (occurrence: US)
  Receive Date: 20120628
  Receipt Date: 20130628
  Transmission Date: 20140414
  Serious: Yes (Life-Threatening, Congenital Anomaly, Other)
  Sender: FDA-Public Use
  Company Number: US-PFIZER INC-2012152244

PATIENT
  Sex: Male

DRUGS (10)
  1. ZOLOFT [Suspect]
     Indication: ANXIETY
     Dosage: 25 MG, DAILY FOR ONE WEEK
     Route: 064
     Dates: start: 20050928, end: 20051004
  2. ZOLOFT [Suspect]
     Dosage: 50 MG, 1X/DAY (25MG TWO TABLETS)
     Route: 064
     Dates: start: 20051019
  3. PAXIL [Concomitant]
     Indication: ANXIETY
     Dosage: 25 MG, UNK
     Route: 064
     Dates: start: 20041220, end: 20050928
  4. SYNTHROID [Concomitant]
     Dosage: 175 UG, UNK
     Route: 064
     Dates: start: 20041022
  5. CITALOPRAM [Concomitant]
     Dosage: 20 MG, UNK
     Route: 064
     Dates: start: 20051114
  6. METRONIDAZOLE [Concomitant]
     Dosage: 500 MG, UNK
     Route: 064
     Dates: start: 20051220
  7. SUDAFED [Concomitant]
     Dosage: UNK
     Route: 064
  8. EXCEDRIN [Concomitant]
     Dosage: UNK
     Route: 064
  9. PAROXETINE [Concomitant]
     Dosage: 10 MG, UNK
     Route: 064
     Dates: start: 20050708
  10. LEVOTHYROX [Concomitant]
     Dosage: 175 UG, UNK
     Route: 064
     Dates: start: 20051013

REACTIONS (10)
  - Maternal exposure timing unspecified [Unknown]
  - Exomphalos [Unknown]
  - Persistent foetal circulation [Unknown]
  - Laryngomalacia [Unknown]
  - Tracheomalacia [Unknown]
  - Bronchomalacia [Unknown]
  - Congenital inguinal hernia [Unknown]
  - Heart disease congenital [Unknown]
  - Atrial septal defect [Unknown]
  - Lung disorder [Unknown]
